FAERS Safety Report 13559429 (Version 1)
Quarter: 2017Q2

REPORT INFORMATION
  Report Type: Spontaneous
  Country: US (occurrence: US)
  Receive Date: 20170518
  Receipt Date: 20170518
  Transmission Date: 20170830
  Serious: No
  Sender: FDA-Public Use
  Company Number: US-LUPIN PHARMACEUTICALS INC.-E2B_00005442

PATIENT
  Sex: Male
  Weight: 89 kg

DRUGS (2)
  1. QUETIAPINE TABLETS USP, 200 MG [Suspect]
     Active Substance: QUETIAPINE FUMARATE
     Dosage: UNK UNK,UNK,UNKNOWN
     Route: 065
  2. QUETIAPINE TABLETS USP, 200 MG [Suspect]
     Active Substance: QUETIAPINE FUMARATE
     Indication: BIPOLAR DISORDER
     Dosage: 400 MG IN THE MORNING AND 300 MG IN THE EVENING
     Route: 048
     Dates: start: 201511, end: 201603

REACTIONS (11)
  - Dizziness [Recovered/Resolved]
  - Dysarthria [Recovered/Resolved]
  - Vomiting [Not Recovered/Not Resolved]
  - Confusional state [Recovered/Resolved]
  - Dyskinesia [Recovered/Resolved]
  - Nausea [Not Recovered/Not Resolved]
  - Headache [Recovered/Resolved]
  - Asthenia [Recovered/Resolved]
  - Paraesthesia [Unknown]
  - Feeling abnormal [Recovered/Resolved]
  - Fear of death [Recovered/Resolved]
